FAERS Safety Report 23793289 (Version 1)
Quarter: 2024Q2

REPORT INFORMATION
  Report Type: Spontaneous
  Country: US (occurrence: US)
  Receive Date: 20240429
  Receipt Date: 20240429
  Transmission Date: 20240716
  Serious: Yes (Other)
  Sender: FDA-Public Use
  Company Number: US-SA-SAC20240426000053

PATIENT
  Age: 17 Year
  Sex: Female

DRUGS (3)
  1. DUPIXENT [Suspect]
     Active Substance: DUPILUMAB
     Indication: Eczema
     Dosage: 400 MG, 1X
     Route: 058
     Dates: start: 202307, end: 202307
  2. DUPIXENT [Suspect]
     Active Substance: DUPILUMAB
     Dosage: 200 MG, QOW (1 PEN ON DAY 15, THEN 1 PEN EVERY 14 DAYS THEREAFTER)
     Route: 058
     Dates: end: 202403
  3. RINVOQ [Concomitant]
     Active Substance: UPADACITINIB
     Dosage: UNK

REACTIONS (4)
  - Cataract [Unknown]
  - Dry skin [Unknown]
  - Eczema [Unknown]
  - Therapeutic response decreased [Unknown]
